FAERS Safety Report 7291427-1 (Version None)
Quarter: 2011Q1

REPORT INFORMATION
  Report Type: 
  Country: None (occurrence: None)
  Receive Date: 20110214
  Receipt Date: 20110207
  Transmission Date: 20110831
  Serious: Yes (Hospitalization)
  Sender: FDA-Public Use
  Company Number: B0699592A

PATIENT
  Sex: Male

DRUGS (5)
  1. LAMBIPOL [Suspect]
     Indication: BIPOLAR DISORDER
     Dosage: 400MG PER DAY
     Route: 065
  2. LITHIUM [Concomitant]
     Route: 065
  3. MANIPREX [Concomitant]
     Route: 065
  4. SIPRALEXA [Concomitant]
     Route: 065
  5. ZYPREXA [Concomitant]
     Route: 065

REACTIONS (5)
  - NEUROLOGICAL SYMPTOM [None]
  - DIPLOPIA [None]
  - DYSSTASIA [None]
  - OVERDOSE [None]
  - TREMOR [None]
